FAERS Safety Report 14221952 (Version 2)
Quarter: 2017Q4

REPORT INFORMATION
  Report Type: Report from Study
  Country: BR (occurrence: BR)
  Receive Date: 20171124
  Receipt Date: 20171129
  Transmission Date: 20180321
  Serious: Yes (Hospitalization)
  Sender: FDA-Public Use
  Company Number: BR-ROCHE-2025717

PATIENT
  Age: 52 Year
  Sex: Male
  Weight: 67 kg

DRUGS (3)
  1. COBIMETINIB. [Suspect]
     Active Substance: COBIMETINIB
     Indication: MALIGNANT MELANOMA
     Dosage: MOST RECENT DOSE ON 13/NOV/2017
     Route: 048
     Dates: start: 20171003
  2. ATEZOLIZUMAB. [Suspect]
     Active Substance: ATEZOLIZUMAB
     Indication: MALIGNANT MELANOMA
     Dosage: MOST RECENT DOSE ON 31/OCT/2017 TOTAL VOLUME 264 ML
     Route: 042
     Dates: start: 20171031
  3. VEMURAFENIB. [Suspect]
     Active Substance: VEMURAFENIB
     Indication: MALIGNANT MELANOMA
     Dosage: TOTAL NUMBER TABLETS PRIOR TO EVENT ON 13/NOV/2017 WERE 4?DOSE BLINDED
     Route: 048
     Dates: start: 20171003

REACTIONS (1)
  - Pharyngitis bacterial [Recovered/Resolved]

NARRATIVE: CASE EVENT DATE: 20171113
